FAERS Safety Report 8212878-4 (Version None)
Quarter: 2012Q1

REPORT INFORMATION
  Report Type: 
  Country: None (occurrence: None)
  Receive Date: 20120228
  Receipt Date: 20111122
  Transmission Date: 20120608
  Serious: Yes (Hospitalization)
  Sender: FDA-Public Use
  Company Number: RB-34807-2011

PATIENT
  Sex: Male

DRUGS (5)
  1. FENTANYL [Concomitant]
  2. OXYCODONE HCL [Concomitant]
  3. BACLOFEN [Concomitant]
  4. VALIUM [Concomitant]
  5. SUBOXONE [Suspect]
     Indication: PAIN
     Dosage: 8 MG BID SUBLINGUAL
     Route: 060
     Dates: start: 20110101

REACTIONS (1)
  - OFF LABEL USE [None]
